FAERS Safety Report 7320219-X (Version None)
Quarter: 2011Q1

REPORT INFORMATION
  Report Type: 
  Country: None (occurrence: None)
  Receive Date: 20110228
  Receipt Date: 20110216
  Transmission Date: 20110831
  Serious: Yes (Other)
  Sender: FDA-Public Use
  Company Number: PHHY2011FR13997

PATIENT
  Sex: Male

DRUGS (2)
  1. NEBIVOLOL HCL [Concomitant]
     Dosage: UNK
  2. RASILEZ HCT [Suspect]
     Indication: HYPERTENSION
     Dosage: 1 DF DAILY
     Dates: start: 20101008

REACTIONS (2)
  - RAYNAUD'S PHENOMENON [None]
  - NASOPHARYNGITIS [None]
